FAERS Safety Report 8254794-8 (Version None)
Quarter: 2012Q2

REPORT INFORMATION
  Report Type: 
  Country: None (occurrence: None)
  Receive Date: 20120403
  Receipt Date: 20120326
  Transmission Date: 20120825
  Serious: Yes (Other)
  Sender: FDA-Public Use
  Company Number: PHHY2012JP023175

PATIENT
  Age: 67 Year
  Sex: Female
  Weight: 64 kg

DRUGS (5)
  1. IMATINIB MESYLATE [Suspect]
     Indication: CHRONIC MYELOID LEUKAEMIA
     Dosage: 400 MG, UNK
     Dates: start: 20080601
  2. IMATINIB MESYLATE [Suspect]
     Dosage: 100 MG, UNK
  3. PREDNISOLONE [Concomitant]
     Dosage: 30 MG, UNK
  4. IMATINIB MESYLATE [Suspect]
     Dosage: 400 MG, UNK
  5. DIURETICS [Concomitant]

REACTIONS (5)
  - THROMBOCYTOPENIA [None]
  - FLUID RETENTION [None]
  - WEIGHT INCREASED [None]
  - DRUG INTOLERANCE [None]
  - SKIN DISORDER [None]
